FAERS Safety Report 7160379-7 (Version None)
Quarter: 2010Q4

REPORT INFORMATION
  Report Type: 
  Country: None (occurrence: None)
  Receive Date: 20101214
  Receipt Date: 20091203
  Transmission Date: 20110411
  Serious: No
  Sender: FDA-Public Use
  Company Number: US-AMGEN-KDL378339

PATIENT

DRUGS (3)
  1. ENBREL [Suspect]
     Indication: RHEUMATOID ARTHRITIS
     Dosage: 50 MG, QWK
     Route: 058
     Dates: start: 20081001
  2. SULFASALAZINE [Concomitant]
     Dosage: 1000 MG, BID
     Route: 048
  3. HYDROXYCHLOROQUINE [Concomitant]
     Dosage: 200 MG, BID

REACTIONS (2)
  - BACK PAIN [None]
  - HYPOAESTHESIA [None]
